FAERS Safety Report 16477497 (Version 6)
Quarter: 2020Q1

REPORT INFORMATION
  Report Type: Report from Study
  Country: CA (occurrence: CA)
  Receive Date: 20190626
  Receipt Date: 20200305
  Transmission Date: 20200409
  Serious: Yes (Death, Hospitalization, Other)
  Sender: FDA-Public Use
  Company Number: PHHY2016CA179677

PATIENT
  Age: 88 Year
  Sex: Male

DRUGS (5)
  1. SANDOSTATIN [Suspect]
     Active Substance: OCTREOTIDE ACETATE
     Indication: CARCINOID TUMOUR
     Dosage: TEST DOSE, ONCE/SINGLE
     Route: 058
     Dates: start: 20161017, end: 20161017
  2. SANDOSTATIN LAR DEPOT [Suspect]
     Active Substance: OCTREOTIDE ACETATE
     Dosage: 30 MG, QMO
     Route: 030
     Dates: start: 20170214
  3. SANDOSTATIN LAR DEPOT [Suspect]
     Active Substance: OCTREOTIDE ACETATE
     Indication: CARCINOID TUMOUR
     Dosage: 30 MG, QMO (EVERY 4 WEEKS)
     Route: 030
     Dates: start: 20161130
  4. SANDOSTATIN LAR DEPOT [Suspect]
     Active Substance: OCTREOTIDE ACETATE
     Dosage: 60 MG, QMO (EVERY 4 WEEKS)
     Route: 030
     Dates: start: 20170214, end: 20200204
  5. TYLENOL [Concomitant]
     Active Substance: ACETAMINOPHEN
     Indication: PRODUCT USED FOR UNKNOWN INDICATION
     Dosage: UNK
     Route: 048

REACTIONS (26)
  - Cerebrovascular accident [Fatal]
  - Abdominal pain [Unknown]
  - Needle issue [Unknown]
  - Spinal pain [Unknown]
  - Breast swelling [Unknown]
  - Malaise [Unknown]
  - Decreased appetite [Unknown]
  - Renal impairment [Unknown]
  - General physical health deterioration [Unknown]
  - Nerve compression [Unknown]
  - Cachexia [Unknown]
  - Peripheral swelling [Unknown]
  - Oedema [Unknown]
  - Asthenia [Unknown]
  - Weight decreased [Unknown]
  - Heart rate decreased [Unknown]
  - Chest pain [Unknown]
  - Mental disorder [Unknown]
  - Constipation [Unknown]
  - Blood pressure systolic increased [Unknown]
  - Diarrhoea [Unknown]
  - Arthralgia [Unknown]
  - Intestinal obstruction [Unknown]
  - Candida infection [Unknown]
  - Faeces hard [Unknown]
  - Injection site oedema [Unknown]

NARRATIVE: CASE EVENT DATE: 201612
